FAERS Safety Report 5376122-8 (Version None)
Quarter: 2007Q3

REPORT INFORMATION
  Report Type: 
  Country: None (occurrence: None)
  Receive Date: 20070702
  Receipt Date: 20070628
  Transmission Date: 20080115
  Serious: Yes (Hospitalization)
  Sender: FDA-Public Use
  Company Number: B0477153A

PATIENT
  Sex: Female

DRUGS (1)
  1. AMOXICILLIN TRIHYDRATE [Suspect]
     Dosage: 250MG PER DAY
     Route: 048
     Dates: start: 20070614, end: 20070614

REACTIONS (2)
  - DYSPNOEA [None]
  - PALPITATIONS [None]
